FAERS Safety Report 10044380 (Version 2)
Quarter: 2014Q2

REPORT INFORMATION
  Report Type: Spontaneous
  Country: US (occurrence: US)
  Receive Date: 20140328
  Receipt Date: 20140415
  Transmission Date: 20141212
  Serious: Yes (Other)
  Sender: FDA-Public Use
  Company Number: US-BAYER-2014-047061

PATIENT
  Sex: Female

DRUGS (3)
  1. MIRENA [Suspect]
     Dosage: 20 MCG/24HR, CONT
     Route: 015
     Dates: start: 20130424, end: 20131113
  2. PROGESTERONE [Suspect]
     Indication: GENITAL HAEMORRHAGE
     Dosage: UNK
     Dates: start: 2013, end: 2013
  3. ESTROGEN [Suspect]
     Indication: GENITAL HAEMORRHAGE
     Dosage: UNK
     Dates: start: 2013, end: 2013

REACTIONS (16)
  - Genital haemorrhage [None]
  - Genital haemorrhage [None]
  - Genital haemorrhage [Not Recovered/Not Resolved]
  - Post procedural haemorrhage [None]
  - Polymenorrhoea [None]
  - Drug ineffective [None]
  - Acne [Not Recovered/Not Resolved]
  - Acne [None]
  - Back pain [None]
  - Heart rate increased [None]
  - Nausea [None]
  - Feeling abnormal [None]
  - Anxiety [None]
  - Irritability [None]
  - Asthenia [None]
  - Discomfort [None]
